FAERS Safety Report 5918111-8 (Version None)
Quarter: 2008Q4

REPORT INFORMATION
  Report Type: 
  Country: None (occurrence: None)
  Receive Date: 20081014
  Receipt Date: 20081003
  Transmission Date: 20090506
  Serious: Yes (Hospitalization)
  Sender: FDA-Public Use
  Company Number: IT-ASTRAZENECA-2008SE04658

PATIENT
  Age: 25844 Day
  Sex: Male

DRUGS (7)
  1. TENORMIN [Suspect]
     Indication: BLOOD PRESSURE INCREASED
     Route: 048
     Dates: start: 20080912, end: 20080912
  2. MICARDIS HCT [Suspect]
     Indication: HYPERTENSION
     Dosage: 80/12.5 MG / 2 DAYS
     Route: 048
     Dates: start: 20080101, end: 20080912
  3. ISOPTIN [Suspect]
     Indication: HYPERTENSION
     Route: 048
     Dates: start: 20080101, end: 20080912
  4. METFORMIN [Concomitant]
     Indication: DIABETES MELLITUS
     Route: 048
     Dates: start: 20080101, end: 20080912
  5. DAONIL [Concomitant]
     Indication: DIABETES MELLITUS
     Route: 048
     Dates: start: 20080101, end: 20080912
  6. ASPIRIN [Concomitant]
     Indication: PROPHYLAXIS
     Route: 048
     Dates: start: 20080101, end: 20080912
  7. RABEPRAZOLE SODIUM [Concomitant]
     Indication: PROPHYLAXIS
     Route: 048
     Dates: start: 20080101, end: 20080912

REACTIONS (3)
  - HYPOTENSION [None]
  - PRESYNCOPE [None]
  - SINUS BRADYCARDIA [None]
